FAERS Safety Report 12901336 (Version 2)
Quarter: 2016Q4

REPORT INFORMATION
  Report Type: Spontaneous
  Country: JP (occurrence: JP)
  Receive Date: 20161101
  Receipt Date: 20161230
  Transmission Date: 20170207
  Serious: Yes (Hospitalization, Other)
  Sender: FDA-Public Use
  Company Number: JP-009507513-1610JPN016564

PATIENT
  Age: 67 Year
  Sex: Female
  Weight: 47.3 kg

DRUGS (7)
  1. SULFAMETHOXAZOLE AND TRIMETHOPRIM [Concomitant]
     Active Substance: SULFAMETHOXAZOLE\TRIMETHOPRIM
     Indication: ANTIFUNGAL PROPHYLAXIS
     Dosage: 480 MG, QD
     Route: 048
     Dates: start: 20160830, end: 20161216
  2. TEMODAL [Suspect]
     Active Substance: TEMOZOLOMIDE
     Indication: GLIOBLASTOMA
     Dosage: 100 MG, QD
     Route: 048
     Dates: start: 20160830, end: 20160921
  3. FAMOTIDINE. [Concomitant]
     Active Substance: FAMOTIDINE
     Indication: GASTRITIS PROPHYLAXIS
     Dosage: 20 MG, BID
     Route: 048
     Dates: start: 20160819, end: 2016
  4. DEPAKENE [Concomitant]
     Active Substance: VALPROIC ACID
     Indication: CONVULSION PROPHYLAXIS
     Dosage: 200 MG, BID
     Route: 048
     Dates: start: 20160819, end: 20161216
  5. GOREI-SAN [Concomitant]
     Active Substance: HERBALS
     Indication: BRAIN OEDEMA
     Dosage: 2.5 G, TID
     Route: 048
     Dates: start: 20160819, end: 20161216
  6. DECADRON [Concomitant]
     Active Substance: DEXAMETHASONE
     Indication: BRAIN OEDEMA
     Dosage: 2 MG, QD
     Route: 048
     Dates: start: 20160914, end: 201611
  7. ZOFRAN [Concomitant]
     Active Substance: ONDANSETRON HYDROCHLORIDE
     Indication: NAUSEA
     Dosage: 4 MG, QD
     Route: 048
     Dates: start: 20160830, end: 20160921

REACTIONS (5)
  - Gait disturbance [Recovering/Resolving]
  - Aphasia [Recovering/Resolving]
  - Brain oedema [Recovering/Resolving]
  - Disease progression [Unknown]
  - Seizure [Recovered/Resolved]

NARRATIVE: CASE EVENT DATE: 20161005
